FAERS Safety Report 10907244 (Version 1)
Quarter: 2015Q1

REPORT INFORMATION
  Report Type: Spontaneous
  Country: US (occurrence: None)
  Receive Date: 20150309
  Receipt Date: 20150309
  Transmission Date: 20150721
  Serious: Yes (Life-Threatening, Hospitalization)
  Sender: FDA-Public Use
  Company Number: None

PATIENT
  Age: 34 Year
  Sex: Male
  Weight: 106.14 kg

DRUGS (2)
  1. ONCASPAR [Suspect]
     Active Substance: PEGASPARGASE
     Indication: ACUTE LYMPHOCYTIC LEUKAEMIA
     Route: 042
     Dates: start: 20150304, end: 20150304
  2. ONCASPAR [Suspect]
     Active Substance: PEGASPARGASE
     Indication: CHEMOTHERAPY
     Route: 042
     Dates: start: 20150304, end: 20150304

REACTIONS (7)
  - Eye movement disorder [None]
  - Cardio-respiratory arrest [None]
  - Fall [None]
  - Pulse absent [None]
  - Hyperhidrosis [None]
  - Dyspnoea [None]
  - Frustration [None]

NARRATIVE: CASE EVENT DATE: 20150304
